FAERS Safety Report 5275509-1 (Version None)
Quarter: 2007Q1

REPORT INFORMATION
  Report Type: 
  Country: None (occurrence: None)
  Receive Date: 20070326
  Receipt Date: 20070314
  Transmission Date: 20070707
  Serious: Yes (Hospitalization)
  Sender: FDA-Public Use
  Company Number: US-AMGEN-US214917

PATIENT
  Sex: Male

DRUGS (5)
  1. VECTIBIX [Suspect]
     Indication: COLORECTAL CANCER
     Route: 065
     Dates: start: 20070213
  2. LOPRESSOR [Concomitant]
     Route: 065
  3. COUMADIN [Concomitant]
     Route: 065
  4. MEGACE [Concomitant]
     Route: 065
  5. HYDROCODONE [Concomitant]
     Route: 048
     Dates: start: 20070220, end: 20070220

REACTIONS (1)
  - DELIRIUM [None]
